FAERS Safety Report 18950346 (Version 1)
Quarter: 2021Q1

REPORT INFORMATION
  Report Type: Spontaneous
  Country: US (occurrence: US)
  Receive Date: 20210228
  Receipt Date: 20210228
  Transmission Date: 20210420
  Serious: No
  Sender: FDA-Public Use
  Company Number: US-ROCHE-2728837

PATIENT
  Age: 57 Year
  Sex: Female

DRUGS (20)
  1. ALBUTEROL. [Concomitant]
     Active Substance: ALBUTEROL
     Dosage: SUSPENSION SYR 2MG/5ML
  2. ASPIRIN. [Concomitant]
     Active Substance: ASPIRIN
  3. LISINOPRIL. [Concomitant]
     Active Substance: LISINOPRIL
  4. HYDROCHLOROTHIAZIDE. [Concomitant]
     Active Substance: HYDROCHLOROTHIAZIDE
  5. TOPIRAMATE. [Concomitant]
     Active Substance: TOPIRAMATE
  6. XANAX [Concomitant]
     Active Substance: ALPRAZOLAM
  7. BREO ELLIPTA [Concomitant]
     Active Substance: FLUTICASONE FUROATE\VILANTEROL TRIFENATATE
  8. OMEPRAZOLE. [Concomitant]
     Active Substance: OMEPRAZOLE
  9. ESTRACE [Concomitant]
     Active Substance: ESTRADIOL
  10. METHOCARBAMOL. [Concomitant]
     Active Substance: METHOCARBAMOL
  11. MONTELUKAST [Concomitant]
     Active Substance: MONTELUKAST SODIUM
  12. PHENERGAN [Concomitant]
     Active Substance: PROMETHAZINE HYDROCHLORIDE
     Dosage: 25MG/ML
  13. EPINEPHRINE. [Concomitant]
     Active Substance: EPINEPHRINE
  14. HYDROCODONE [Concomitant]
     Active Substance: HYDROCODONE
     Dosage: TAB 5?325 MG
  15. VITAMIN D3 [Concomitant]
     Active Substance: CHOLECALCIFEROL
  16. XOLAIR [Suspect]
     Active Substance: OMALIZUMAB
     Indication: RESPIRATORY DISORDER
     Route: 058
  17. GABAPENTIN. [Concomitant]
     Active Substance: GABAPENTIN
  18. ASMANEX [Concomitant]
     Active Substance: MOMETASONE FUROATE
  19. IBUPROFEN. [Concomitant]
     Active Substance: IBUPROFEN
  20. PREDNISONE. [Concomitant]
     Active Substance: PREDNISONE

REACTIONS (4)
  - Off label use [Unknown]
  - Intentional product use issue [Unknown]
  - Muscle spasms [Not Recovered/Not Resolved]
  - Asthma [Not Recovered/Not Resolved]

NARRATIVE: CASE EVENT DATE: 20201204
